FAERS Safety Report 6102951-9 (Version None)
Quarter: 2009Q1

REPORT INFORMATION
  Report Type: 
  Country: None (occurrence: None)
  Receive Date: 20090305
  Receipt Date: 20090219
  Transmission Date: 20090719
  Serious: Yes (Other)
  Sender: FDA-Public Use
  Company Number: PHEH2009US01877

PATIENT
  Sex: Female

DRUGS (1)
  1. COMBIPATCH [Suspect]

REACTIONS (4)
  - BREAST PAIN [None]
  - HERPES VIRUS INFECTION [None]
  - VULVOVAGINAL DRYNESS [None]
  - WITHDRAWAL SYNDROME [None]
